FAERS Safety Report 9433717 (Version 1)
Quarter: 2013Q3

REPORT INFORMATION
  Report Type: Spontaneous
  Country: BR (occurrence: BR)
  Receive Date: 20130731
  Receipt Date: 20130731
  Transmission Date: 20140515
  Serious: Yes (Hospitalization, Other)
  Sender: FDA-Public Use
  Company Number: BR-ASTRAZENECA-2013SE56601

PATIENT
  Age: 799 Month
  Sex: Male
  Weight: 78 kg

DRUGS (5)
  1. SYMBICORT TURBUHALER [Suspect]
     Indication: CHRONIC OBSTRUCTIVE PULMONARY DISEASE
     Dosage: 320/9 MCG TWO TIMES A DAY
     Route: 055
     Dates: start: 2009
  2. BENICAR [Concomitant]
  3. ALDACTONE [Concomitant]
  4. CONCOR [Concomitant]
  5. SOMALGIN CARDIO [Concomitant]

REACTIONS (2)
  - Acute myocardial infarction [Recovered/Resolved]
  - Coronary artery restenosis [Recovered/Resolved]
